FAERS Safety Report 9663658 (Version 1)
Quarter: 2013Q4

REPORT INFORMATION
  Report Type: Spontaneous
  Country: BR (occurrence: BR)
  Receive Date: 20131101
  Receipt Date: 20131101
  Transmission Date: 20140711
  Serious: Yes (Death)
  Sender: FDA-Public Use
  Company Number: PHHY2013BR123181

PATIENT
  Sex: Female
  Weight: 66 kg

DRUGS (6)
  1. ONBREZ [Suspect]
     Indication: CHRONIC OBSTRUCTIVE PULMONARY DISEASE
     Dosage: 150 UG, QD
  2. LOSARTAN [Concomitant]
     Indication: CEREBROVASCULAR ACCIDENT
     Dosage: 25 MG, QD
     Route: 048
  3. MAREVAN [Concomitant]
     Indication: CEREBROVASCULAR ACCIDENT
     Dosage: 1 DF, QD
     Route: 048
  4. CARVEDILOL [Concomitant]
     Indication: CEREBROVASCULAR ACCIDENT
     Dosage: 0.25 MG, QD
     Route: 048
  5. LASIX [Concomitant]
     Indication: DYSPNOEA
     Dosage: 1 DF, QD
     Route: 048
  6. EQUILID [Concomitant]
     Indication: DIZZINESS
     Dosage: 50 MG, QD
     Route: 048
     Dates: start: 2013

REACTIONS (6)
  - Cerebrovascular accident [Fatal]
  - Ventricular fibrillation [Fatal]
  - Acute myocardial infarction [Fatal]
  - Cardiac failure congestive [Fatal]
  - Abdominal distension [Not Recovered/Not Resolved]
  - Dyspnoea [Unknown]
